FAERS Safety Report 8494824 (Version 3)
Quarter: 2013Q1

REPORT INFORMATION
  Report Type: Report from Study
  Country: FI (occurrence: FI)
  Receive Date: 20120405
  Receipt Date: 20130325
  Transmission Date: 20140127
  Serious: Yes (Hospitalization)
  Sender: FDA-Public Use
  Company Number: FI-BIOGENIDEC-2012BI011060

PATIENT
  Age: 36 Year
  Sex: Female

DRUGS (2)
  1. TYSABRI [Suspect]
     Indication: RELAPSING-REMITTING MULTIPLE SCLEROSIS
     Route: 042
     Dates: start: 20100118
  2. ESOMEPRATSOL [Concomitant]
     Indication: OESOPHAGITIS
     Route: 048
     Dates: start: 20100101

REACTIONS (1)
  - Colon adenoma [Recovered/Resolved]
